FAERS Safety Report 6804326-3 (Version None)
Quarter: 2010Q2

REPORT INFORMATION
  Report Type: 
  Country: None (occurrence: None)
  Receive Date: 20100628
  Receipt Date: 20070306
  Transmission Date: 20101027
  Serious: No
  Sender: FDA-Public Use
  Company Number: US-PFIZER INC-2007016778

PATIENT
  Sex: Female

DRUGS (4)
  1. AMLODIPINE BESYLATE AND ATORVASTATIN CALIUM [Suspect]
     Dosage: 5/20 MG
     Dates: start: 20070227, end: 20070228
  2. LIPITOR [Suspect]
  3. ACETYLSALICYLIC ACID [Concomitant]
  4. HYZAAR [Concomitant]

REACTIONS (6)
  - BACK PAIN [None]
  - BLOOD PRESSURE INCREASED [None]
  - DIZZINESS [None]
  - HEART RATE INCREASED [None]
  - MUSCULOSKELETAL STIFFNESS [None]
  - UNEVALUABLE EVENT [None]
